FAERS Safety Report 5162888-9 (Version None)
Quarter: 2006Q4

REPORT INFORMATION
  Report Type: 
  Country: None (occurrence: None)
  Receive Date: 20061201
  Receipt Date: 20060105
  Transmission Date: 20070319
  Serious: Yes (Other)
  Sender: FDA-Public Use
  Company Number: US-ROCHE-431089

PATIENT
  Age: 55 Year
  Sex: Female
  Weight: 54.4 kg

DRUGS (7)
  1. PEGASYS [Suspect]
     Route: 058
     Dates: start: 20051025, end: 20060912
  2. COPEGUS [Suspect]
     Dosage: 400 MG IN THE MORNING AND 600 MG IN THE EVENING.
     Route: 048
     Dates: start: 20051026
  3. COPEGUS [Suspect]
     Route: 048
     Dates: start: 20051111, end: 20051116
  4. COPEGUS [Suspect]
     Route: 048
     Dates: start: 20051201, end: 20051208
  5. COPEGUS [Suspect]
     Route: 048
     Dates: start: 20051220, end: 20051222
  6. COPEGUS [Suspect]
     Dosage: 200MG AM AND 400MG PM.
     Route: 048
     Dates: start: 20051209, end: 20051219
  7. PROCRIT [Concomitant]
     Dosage: FREQUENCY= WEEKLY
     Route: 058
     Dates: start: 20051123, end: 20051222

REACTIONS (14)
  - ANAEMIA [None]
  - ASPIRATION [None]
  - CARDIOSPASM [None]
  - DYSPHAGIA [None]
  - FATIGUE [None]
  - GASTRITIS [None]
  - HIATUS HERNIA [None]
  - INSOMNIA [None]
  - MALNUTRITION [None]
  - MUSCLE RIGIDITY [None]
  - OESOPHAGEAL DISORDER [None]
  - OESOPHAGITIS [None]
  - RASH PRURITIC [None]
  - WEIGHT DECREASED [None]
